FAERS Safety Report 23590612 (Version 1)
Quarter: 2024Q1

REPORT INFORMATION
  Report Type: Spontaneous
  Country: US (occurrence: US)
  Receive Date: 20240304
  Receipt Date: 20240304
  Transmission Date: 20240410
  Serious: Yes (Disabling, Other)
  Sender: FDA-Public Use
  Company Number: US-SA-2023SA093138

PATIENT
  Age: 35 Year

DRUGS (1)
  1. TALC [Suspect]
     Active Substance: TALC
     Indication: Product used for unknown indication
     Dosage: DOSE DESCRIPTION : UNK
     Route: 065

REACTIONS (4)
  - Pleural mesothelioma [Unknown]
  - Disability [Unknown]
  - Exposure to chemical pollution [Unknown]
  - Injury [Unknown]

NARRATIVE: CASE EVENT DATE: 20200611
